FAERS Safety Report 24321113 (Version 2)
Quarter: 2025Q2

REPORT INFORMATION
  Report Type: Spontaneous
  Country: US (occurrence: US)
  Receive Date: 20240916
  Receipt Date: 20250407
  Transmission Date: 20250716
  Serious: No
  Sender: ALEXION PHARMACEUTICALS
  Company Number: 2024A198945

PATIENT

DRUGS (2)
  1. BREZTRI [Suspect]
     Active Substance: BUDESONIDE\FORMOTEROL\GLYCOPYRROLATE
     Indication: Emphysema
  2. SYMBICORT [Concomitant]
     Active Substance: BUDESONIDE\FORMOTEROL FUMARATE DIHYDRATE

REACTIONS (11)
  - Memory impairment [Unknown]
  - Overdose [Unknown]
  - Incorrect dose administered by device [Unknown]
  - Device use issue [Unknown]
  - Product use issue [Unknown]
  - Product label issue [Unknown]
  - Device issue [Unknown]
  - Product use issue [Unknown]
  - Product dose omission issue [Unknown]
  - No adverse event [Unknown]
  - Device colour issue [Unknown]
